FAERS Safety Report 19821884 (Version 1)
Quarter: 2021Q3

REPORT INFORMATION
  Report Type: Spontaneous
  Country: US (occurrence: US)
  Receive Date: 20210909
  Receipt Date: 20210909
  Transmission Date: 20211014
  Serious: Yes (Hospitalization)
  Sender: FDA-Public Use
  Company Number: None

PATIENT
  Sex: Female

DRUGS (1)
  1. AVONEX PEN [Suspect]
     Active Substance: INTERFERON BETA-1A
     Indication: MULTIPLE SCLEROSIS
     Dosage: OTHER STRENGTH:30/0.5 UG/ML;OTHER DOSE:30/0.5 UG/ML;?
     Route: 030
     Dates: start: 20120223

REACTIONS (1)
  - Bone disorder [None]
